FAERS Safety Report 11155155 (Version 1)
Quarter: 2015Q2

REPORT INFORMATION
  Report Type: Spontaneous
  Country: GB (occurrence: GB)
  Receive Date: 20150602
  Receipt Date: 20150602
  Transmission Date: 20150821
  Serious: Yes (Hospitalization)
  Sender: FDA-Public Use
  Company Number: GB-ROCHE-1585769

PATIENT
  Age: 57 Year

DRUGS (6)
  1. TIOTROPIUM BROMIDE [Concomitant]
     Active Substance: TIOTROPIUM BROMIDE
     Route: 050
  2. CO-DYDRAMOL [Concomitant]
     Active Substance: ACETAMINOPHEN\DIHYDROCODEINE
     Dosage: 10MG/500MG. TAKE AS REQUIRED UP TO FOUR TIME DAILY.
     Route: 051
  3. SALBUTAMOL [Concomitant]
     Active Substance: ALBUTEROL
     Dosage: 2 PUFFS AS REQUIRED
     Route: 055
  4. NAPROXEN SODIUM. [Suspect]
     Active Substance: NAPROXEN SODIUM
     Indication: PRODUCT USED FOR UNKNOWN INDICATION
     Dosage: DURATION: OVER ONE YEAR
     Route: 048
  5. SERETIDE [Concomitant]
     Active Substance: FLUTICASONE FUROATE\SALMETEROL XINAFOATE
     Route: 050
  6. TRAMADOL [Concomitant]
     Active Substance: TRAMADOL
     Route: 051

REACTIONS (5)
  - Small intestinal haemorrhage [Recovering/Resolving]
  - Duodenitis [Recovering/Resolving]
  - Faeces discoloured [Recovering/Resolving]
  - Dizziness [Recovering/Resolving]
  - Duodenal ulcer [Recovering/Resolving]
